FAERS Safety Report 10958747 (Version 1)
Quarter: 2015Q1

REPORT INFORMATION
  Report Type: Spontaneous
  Country: BE (occurrence: BE)
  Receive Date: 20150326
  Receipt Date: 20150326
  Transmission Date: 20150721
  Serious: Yes (Death, Other)
  Sender: FDA-Public Use
  Company Number: BE-ASTRAZENECA-2015SE23795

PATIENT
  Age: 23982 Day
  Sex: Male
  Weight: 80 kg

DRUGS (11)
  1. DUPHALAC FRUIT [Concomitant]
     Dosage: 1 LITTLE BAG DAILY
  2. NOVORAPID [Concomitant]
     Active Substance: INSULIN ASPART
  3. COVERSYL [Concomitant]
     Active Substance: PERINDOPRIL
  4. ASAFLOW [Concomitant]
     Active Substance: ASPIRIN
  5. PANTOMED [Concomitant]
     Active Substance: DEXPANTHENOL
  6. GLUCOPHAGE [Concomitant]
     Active Substance: METFORMIN HYDROCHLORIDE
  7. CORUNO [Concomitant]
     Active Substance: MOLSIDOMINE
  8. ZOCOR [Concomitant]
     Active Substance: SIMVASTATIN
  9. BRILIQUE [Suspect]
     Active Substance: TICAGRELOR
     Indication: CARDIOVASCULAR EVENT PROPHYLAXIS
     Route: 048
     Dates: start: 20141219, end: 20150216
  10. LANTUS SOLOSTAR [Concomitant]
     Active Substance: INSULIN GLARGINE
  11. VESICARE [Concomitant]
     Active Substance: SOLIFENACIN SUCCINATE

REACTIONS (4)
  - Brain oedema [Fatal]
  - Ventricle rupture [Unknown]
  - Hydrocephalus [Unknown]
  - Brain stem haemorrhage [Fatal]

NARRATIVE: CASE EVENT DATE: 20150217
